FAERS Safety Report 9235734 (Version 2)
Quarter: 2013Q2

REPORT INFORMATION
  Report Type: Spontaneous
  Country: US (occurrence: US)
  Receive Date: 20130417
  Receipt Date: 20130524
  Transmission Date: 20140414
  Serious: Yes (Hospitalization)
  Sender: FDA-Public Use
  Company Number: US-TEVA-398338USA

PATIENT
  Age: 59 Year
  Sex: Male

DRUGS (2)
  1. AZILECT [Suspect]
     Indication: PARKINSON^S DISEASE
     Route: 048
  2. SINEMET [Concomitant]
     Indication: PARKINSON^S DISEASE

REACTIONS (2)
  - Myocardial infarction [Recovered/Resolved]
  - Gastrooesophageal reflux disease [Recovered/Resolved]
